FAERS Safety Report 24986981 (Version 1)
Quarter: 2025Q1

REPORT INFORMATION
  Report Type: Report from Study
  Country: US (occurrence: US)
  Receive Date: 20250219
  Receipt Date: 20250219
  Transmission Date: 20250409
  Serious: Yes (Other)
  Sender: MYLAN
  Company Number: US-MYLANLABS-2025M1013513

PATIENT
  Age: 32 Year
  Sex: Male

DRUGS (12)
  1. RIFAMPIN [Suspect]
     Active Substance: RIFAMPIN
     Indication: Tuberculosis
     Route: 065
  2. MOXIFLOXACIN [Suspect]
     Active Substance: MOXIFLOXACIN
     Indication: Tuberculosis
     Route: 065
  3. ISONIAZID [Suspect]
     Active Substance: ISONIAZID
     Indication: Tuberculosis
     Route: 065
  4. RIFAMYCIN [Suspect]
     Active Substance: RIFAMYCIN
     Indication: Tuberculosis
     Route: 065
  5. PYRAZINAMIDE [Suspect]
     Active Substance: PYRAZINAMIDE
     Indication: Tuberculosis
     Route: 065
  6. ETHAMBUTOL [Suspect]
     Active Substance: ETHAMBUTOL HYDROCHLORIDE
     Indication: Tuberculosis
     Route: 065
  7. RIFABUTIN [Suspect]
     Active Substance: RIFABUTIN
     Indication: Tuberculosis
     Dosage: 300 MILLIGRAM, QD
     Route: 065
  8. RIFABUTIN [Suspect]
     Active Substance: RIFABUTIN
     Dosage: 450 MILLIGRAM, QD
     Route: 065
  9. RIFABUTIN [Suspect]
     Active Substance: RIFABUTIN
     Dosage: 150 MILLIGRAM, QD
     Route: 065
  10. RIFABUTIN [Suspect]
     Active Substance: RIFABUTIN
     Dosage: 150 MILLIGRAM
     Route: 065
  11. STREPTOMYCIN [Suspect]
     Active Substance: STREPTOMYCIN SULFATE
     Indication: Tuberculosis
     Route: 065
  12. LEVOFLOXACIN [Suspect]
     Active Substance: LEVOFLOXACIN
     Indication: Tuberculosis
     Route: 065

REACTIONS (2)
  - Drug resistance [Unknown]
  - Treatment failure [Unknown]
